FAERS Safety Report 9426446 (Version 1)
Quarter: 2013Q3

REPORT INFORMATION
  Report Type: Spontaneous
  Country: US (occurrence: None)
  Receive Date: 20130729
  Receipt Date: 20130729
  Transmission Date: 20140515
  Serious: Yes (Life-Threatening)
  Sender: FDA-Public Use
  Company Number: None

PATIENT
  Age: 65 Year
  Sex: Male
  Weight: 102.06 kg

DRUGS (1)
  1. EPIPEN [Suspect]
     Indication: ARTHROPOD STING
     Dates: start: 20130720, end: 20130720

REACTIONS (2)
  - Atrial fibrillation [None]
  - Blood pressure increased [None]
